FAERS Safety Report 15223358 (Version 1)
Quarter: 2018Q3

REPORT INFORMATION
  Report Type: Spontaneous
  Country: US (occurrence: US)
  Receive Date: 20180731
  Receipt Date: 20180731
  Transmission Date: 20181010
  Serious: Yes (Death, Other)
  Sender: FDA-Public Use
  Company Number: PHHY2018US051888

PATIENT
  Age: 37 Year
  Sex: Female

DRUGS (1)
  1. PREDNISONE. [Suspect]
     Active Substance: PREDNISONE
     Indication: ASTHMA
     Route: 048

REACTIONS (8)
  - Mental status changes [Unknown]
  - Photosensitivity reaction [Unknown]
  - Vomiting [Unknown]
  - Meningitis cryptococcal [Fatal]
  - Generalised tonic-clonic seizure [Unknown]
  - Pyrexia [Unknown]
  - Vision blurred [Fatal]
  - Nausea [Unknown]
